FAERS Safety Report 9902814 (Version 1)
Quarter: 2014Q1

REPORT INFORMATION
  Report Type: Spontaneous
  Country: US (occurrence: US)
  Receive Date: 20140217
  Receipt Date: 20140217
  Transmission Date: 20141002
  Serious: Yes (Death, Hospitalization)
  Sender: FDA-Public Use
  Company Number: PHHY2014US014671

PATIENT
  Age: 53 Year
  Sex: Female

DRUGS (4)
  1. METHOTREXATE [Suspect]
     Indication: BREAST CANCER METASTATIC
  2. 5-FLUOROURACIL [Suspect]
     Indication: BREAST CANCER METASTATIC
     Dosage: 400 MG/M2, UNK
     Route: 042
  3. DOXORUBICIN [Suspect]
     Indication: BREAST CANCER METASTATIC
     Dosage: 40 MG/M2, UNK
     Route: 042
  4. CYCLOPHOSPHAMIDE [Suspect]
     Indication: BREAST CANCER METASTATIC

REACTIONS (18)
  - Tumour lysis syndrome [Fatal]
  - Cardiac arrest [Fatal]
  - Hyperuricaemia [Fatal]
  - Hyperphosphataemia [Fatal]
  - Hyperkalaemia [Fatal]
  - Hypocalcaemia [Fatal]
  - Dyspnoea [Fatal]
  - Renal failure acute [Unknown]
  - Oliguria [Unknown]
  - Haematuria [Unknown]
  - Proteinuria [Unknown]
  - Breast cancer recurrent [Unknown]
  - Malaise [Unknown]
  - Skin mass [Unknown]
  - Abdominal discomfort [Unknown]
  - Lymphadenopathy [Unknown]
  - Hypotension [Unknown]
  - Weight decreased [Unknown]
